FAERS Safety Report 15740942 (Version 1)
Quarter: 2018Q4

REPORT INFORMATION
  Report Type: Spontaneous
  Country: DE (occurrence: DE)
  Receive Date: 20181219
  Receipt Date: 20181219
  Transmission Date: 20190205
  Serious: Yes (Other)
  Sender: FDA-Public Use
  Company Number: DE-JNJFOC-20181215765

PATIENT
  Sex: Female

DRUGS (1)
  1. SIMPONI [Suspect]
     Active Substance: GOLIMUMAB
     Indication: ANKYLOSING SPONDYLITIS
     Dosage: 4-5 WEEKS FREQUENCY
     Route: 058
     Dates: start: 2015

REACTIONS (6)
  - Phlebitis [Not Recovered/Not Resolved]
  - Lymphadenopathy [Not Recovered/Not Resolved]
  - Off label use [Unknown]
  - Thrombosis [Not Recovered/Not Resolved]
  - Oral candidiasis [Unknown]
  - Product use issue [Unknown]

NARRATIVE: CASE EVENT DATE: 2015
